FAERS Safety Report 18756836 (Version 4)
Quarter: 2021Q1

REPORT INFORMATION
  Report Type: Spontaneous
  Country: US (occurrence: US)
  Receive Date: 20210119
  Receipt Date: 20210225
  Transmission Date: 20210419
  Serious: Yes (Other)
  Sender: FDA-Public Use
  Company Number: US-PFIZER INC-2020456883

PATIENT
  Age: 70 Year
  Sex: Female
  Weight: 61.23 kg

DRUGS (2)
  1. EUCRISA [Suspect]
     Active Substance: CRISABOROLE
     Indication: ECZEMA
  2. EUCRISA [Suspect]
     Active Substance: CRISABOROLE
     Indication: DERMATITIS ATOPIC
     Dosage: UNK, 2X/DAY (AS NEEDED)

REACTIONS (6)
  - Wrist fracture [Unknown]
  - Eczema infected [Recovering/Resolving]
  - Inflammation [Unknown]
  - Upper limb fracture [Unknown]
  - Eczema [Recovering/Resolving]
  - Fall [Unknown]

NARRATIVE: CASE EVENT DATE: 20201224
